FAERS Safety Report 9160021 (Version 1)
Quarter: 2013Q1

REPORT INFORMATION
  Report Type: Spontaneous
  Country: US (occurrence: None)
  Receive Date: 20130214
  Receipt Date: 20130214
  Transmission Date: 20140127
  Serious: Yes (Other)
  Sender: FDA-Public Use
  Company Number: 2013MA000698

PATIENT
  Age: 24 Year
  Sex: Female

DRUGS (1)
  1. M-ZOLE [Suspect]
     Route: 067
     Dates: start: 20130122, end: 20130122

REACTIONS (1)
  - Haemorrhage [None]
